FAERS Safety Report 14123134 (Version 1)
Quarter: 2017Q4

REPORT INFORMATION
  Report Type: Report from Study
  Country: None (occurrence: BR)
  Receive Date: 20171025
  Receipt Date: 20171025
  Transmission Date: 20180321
  Serious: Yes (Death, Hospitalization, Disabling, Other)
  Sender: FDA-Public Use
  Company Number: BR-ABBVIE-17K-020-2139000-00

PATIENT
  Age: 71 Year
  Sex: Female
  Weight: 63 kg

DRUGS (2)
  1. HUMIRA [Suspect]
     Active Substance: ADALIMUMAB
     Indication: RHEUMATOID ARTHRITIS
     Route: 058
     Dates: start: 20170516, end: 20170918
  2. RITMONORM [Suspect]
     Active Substance: PROPAFENONE HYDROCHLORIDE
     Indication: ARRHYTHMIA
     Route: 065

REACTIONS (10)
  - Arrhythmia [Unknown]
  - Immunosuppression [Unknown]
  - Vomiting [Unknown]
  - Pneumonia [Unknown]
  - Coma [Unknown]
  - Retching [Unknown]
  - Aspiration [Unknown]
  - Myocardial infarction [Unknown]
  - Multiple organ dysfunction syndrome [Fatal]
  - Blood pressure decreased [Unknown]

NARRATIVE: CASE EVENT DATE: 2017
